FAERS Safety Report 21018929 (Version 1)
Quarter: 2022Q2

REPORT INFORMATION
  Report Type: Spontaneous
  Country: US (occurrence: None)
  Receive Date: 20220628
  Receipt Date: 20220628
  Transmission Date: 20220721
  Serious: No
  Sender: FDA-Public Use
  Company Number: US-MIMS-CORIMC-646

PATIENT
  Age: 10 Year
  Sex: Male

DRUGS (2)
  1. AZSTARYS [Suspect]
     Active Substance: DEXMETHYLPHENIDATE HYDROCHLORIDE\SERDEXMETHYLPHENIDATE CHLORIDE
     Indication: Attention deficit hyperactivity disorder
     Dosage: 1 CAPSULE 39.2 MG/7.8 MG
     Route: 048
     Dates: start: 202202, end: 2022
  2. AZSTARYS [Suspect]
     Active Substance: DEXMETHYLPHENIDATE HYDROCHLORIDE\SERDEXMETHYLPHENIDATE CHLORIDE
     Dosage: 2 CAPSULES 39.2 MG/7.8 MG
     Route: 048
     Dates: start: 2022

REACTIONS (1)
  - Drug ineffective [Unknown]
